FAERS Safety Report 8775992 (Version 2)
Quarter: 2012Q4

REPORT INFORMATION
  Report Type: 
  Country: US (occurrence: US)
  Receive Date: 20120910
  Receipt Date: 20120923
  Transmission Date: 20130627
  Serious: Yes (Hospitalization)
  Sender: FDA-Public Use
  Company Number: US-ABBOTT-12P-163-0976048-00

PATIENT
  Sex: Female
  Weight: 65.83 kg

DRUGS (1)
  1. HUMIRA [Suspect]
     Indication: RHEUMATOID ARTHRITIS
     Dates: start: 201203

REACTIONS (4)
  - Rheumatoid nodule [Recovering/Resolving]
  - Musculoskeletal stiffness [Not Recovered/Not Resolved]
  - Oedema peripheral [Recovering/Resolving]
  - Rheumatoid arthritis [Not Recovered/Not Resolved]
